FAERS Safety Report 24593282 (Version 3)
Quarter: 2025Q1

REPORT INFORMATION
  Report Type: Spontaneous
  Country: RU (occurrence: RU)
  Receive Date: 20241108
  Receipt Date: 20250123
  Transmission Date: 20250409
  Serious: No
  Sender: Unknown Manufacturer
  Company Number: RU-MIRUM PHARMACEUTICALS INTERNATIONAL B.V.-RU-MIR-24-00975

PATIENT

DRUGS (4)
  1. LIVMARLI [Suspect]
     Active Substance: MARALIXIBAT CHLORIDE
     Indication: Alagille syndrome
     Dosage: 0.6 MILLIGRAM, QD
     Route: 048
     Dates: start: 202405, end: 20241024
  2. LIVMARLI [Suspect]
     Active Substance: MARALIXIBAT CHLORIDE
     Dosage: 0.6 MILLIGRAM, QD
     Route: 065
     Dates: start: 20241029
  3. DIETARY SUPPLEMENT [Suspect]
     Active Substance: DIETARY SUPPLEMENT
     Indication: Enteral nutrition
  4. DIETARY SUPPLEMENT [Suspect]
     Active Substance: DIETARY SUPPLEMENT
     Dosage: 200 MILLIGRAM, QD (DECREASED DOSE)
     Route: 065

REACTIONS (2)
  - Anaemia [Unknown]
  - Haematochezia [Recovered/Resolved]

NARRATIVE: CASE EVENT DATE: 20221028
